FAERS Safety Report 17662750 (Version 2)
Quarter: 2020Q3

REPORT INFORMATION
  Report Type: Spontaneous
  Country: US (occurrence: US)
  Receive Date: 20200413
  Receipt Date: 20200812
  Transmission Date: 20201102
  Serious: No
  Sender: FDA-Public Use
  Company Number: US-009507513-2004USA002095

PATIENT
  Age: 36 Year
  Sex: Female

DRUGS (2)
  1. ALBUTEROL SULFATE. [Suspect]
     Active Substance: ALBUTEROL SULFATE
     Dosage: UNK
     Dates: start: 2020
  2. ALBUTEROL SULFATE. [Suspect]
     Active Substance: ALBUTEROL SULFATE
     Indication: DYSPNOEA
     Dosage: EVERY 4 TO 6 HOURS, PRN
     Dates: start: 20200323, end: 20200405

REACTIONS (3)
  - Poor quality device used [Unknown]
  - Product dose omission issue [Unknown]
  - Product quality issue [Unknown]

NARRATIVE: CASE EVENT DATE: 20200405
